FAERS Safety Report 16280861 (Version 1)
Quarter: 2019Q2

REPORT INFORMATION
  Report Type: Spontaneous
  Country: US (occurrence: US)
  Receive Date: 20190402
  Receipt Date: 20190402
  Transmission Date: 20190711
  Serious: No
  Sender: FDA-Public Use
  Company Number: None

PATIENT
  Age: 67 Year
  Sex: Female

DRUGS (1)
  1. TACROLIMUS CAP 1MG [Suspect]
     Active Substance: TACROLIMUS
     Indication: RENAL TRANSPLANT
     Dates: start: 201711

REACTIONS (5)
  - Dizziness [None]
  - Asthenia [None]
  - Product dose omission [None]
  - Headache [None]
  - Memory impairment [None]

NARRATIVE: CASE EVENT DATE: 20190202
